FAERS Safety Report 7448714-3 (Version None)
Quarter: 2011Q2

REPORT INFORMATION
  Report Type: 
  Country: None (occurrence: None)
  Receive Date: 20110429
  Receipt Date: 20100825
  Transmission Date: 20111010
  Serious: No
  Sender: FDA-Public Use
  Company Number: US-ASTRAZENECA-2010SE31418

PATIENT
  Sex: Male
  Weight: 112 kg

DRUGS (6)
  1. SEROQUEL [Suspect]
     Route: 048
  2. SEROQUEL [Suspect]
     Route: 048
  3. PRILOSEC [Suspect]
     Dosage: GENERIC OMEPRAZOLE.
     Route: 048
  4. NEXIUM [Suspect]
     Route: 048
  5. PRILOSEC [Suspect]
     Route: 048
  6. PRILOSEC OTC [Suspect]
     Route: 048

REACTIONS (3)
  - DRUG DOSE OMISSION [None]
  - DRUG INEFFECTIVE [None]
  - WEIGHT INCREASED [None]
